FAERS Safety Report 15266352 (Version 1)
Quarter: 2018Q3

REPORT INFORMATION
  Report Type: Spontaneous
  Country: JP (occurrence: JP)
  Receive Date: 20180810
  Receipt Date: 20180810
  Transmission Date: 20181010
  Serious: Yes (Other)
  Sender: FDA-Public Use
  Company Number: JP-GLAXOSMITHKLINE-JP2018JPN140969

PATIENT
  Sex: Female

DRUGS (1)
  1. SAMTIREL [Suspect]
     Active Substance: ATOVAQUONE
     Route: 048

REACTIONS (3)
  - Haemolytic anaemia [Unknown]
  - Lymphocyte stimulation test positive [Unknown]
  - Malaise [Unknown]
